FAERS Safety Report 12835462 (Version 2)
Quarter: 2017Q1

REPORT INFORMATION
  Report Type: Spontaneous
  Country: US (occurrence: US)
  Receive Date: 20161011
  Receipt Date: 20170110
  Transmission Date: 20170428
  Serious: No
  Sender: FDA-Public Use
  Company Number: US-TEVA-676757USA

PATIENT
  Sex: Female

DRUGS (4)
  1. ZECUITY [Suspect]
     Active Substance: SUMATRIPTAN SUCCINATE
     Indication: MIGRAINE
     Route: 062
  2. TOPROL XL [Concomitant]
     Active Substance: METOPROLOL SUCCINATE
  3. IMETREX [Concomitant]
  4. ELIVAL [Concomitant]

REACTIONS (3)
  - Application site paraesthesia [Recovered/Resolved]
  - Application site dryness [Recovered/Resolved]
  - Application site erythema [Recovered/Resolved]
